FAERS Safety Report 5994845-4 (Version None)
Quarter: 2008Q4

REPORT INFORMATION
  Report Type: 
  Country: None (occurrence: None)
  Receive Date: 20081212
  Receipt Date: 20080915
  Transmission Date: 20090506
  Serious: No
  Sender: FDA-Public Use
  Company Number: US-ABBOTT-08P-163-0476611-00

PATIENT
  Sex: Female

DRUGS (3)
  1. HUMIRA [Suspect]
     Indication: COLITIS ULCERATIVE
     Route: 058
     Dates: start: 20080814
  2. COLAZOL [Concomitant]
     Indication: COLITIS ULCERATIVE
  3. SULFASALAZINE [Concomitant]
     Indication: COLITIS ULCERATIVE

REACTIONS (5)
  - DIARRHOEA [None]
  - DYSPNOEA [None]
  - HEADACHE [None]
  - PANIC ATTACK [None]
  - VOMITING [None]
